FAERS Safety Report 7753874-0 (Version None)
Quarter: 2011Q3

REPORT INFORMATION
  Report Type: 
  Country: None (occurrence: None)
  Receive Date: 20110913
  Receipt Date: 20110830
  Transmission Date: 20111222
  Serious: Yes (Hospitalization)
  Sender: FDA-Public Use
  Company Number: 2011MA012745

PATIENT
  Age: 43 Year
  Sex: Female

DRUGS (1)
  1. PROPRANOLOL HCL [Suspect]
     Indication: MIGRAINE
     Dosage: 60 MG;QD

REACTIONS (12)
  - CONGESTIVE CARDIOMYOPATHY [None]
  - ADRENAL MASS [None]
  - METANEPHRINE URINE DECREASED [None]
  - HYPOTENSION [None]
  - PRESYNCOPE [None]
  - BLOOD PRESSURE INCREASED [None]
  - ELECTROCARDIOGRAM T WAVE INVERSION [None]
  - TROPONIN I INCREASED [None]
  - PHAEOCHROMOCYTOMA [None]
  - TACHYCARDIA [None]
  - LEFT VENTRICULAR FAILURE [None]
  - BLOOD CATECHOLAMINES ABNORMAL [None]
